FAERS Safety Report 15222240 (Version 1)
Quarter: 2018Q3

REPORT INFORMATION
  Report Type: Spontaneous
  Country: US (occurrence: US)
  Receive Date: 20180731
  Receipt Date: 20180731
  Transmission Date: 20181010
  Serious: Yes (Other)
  Sender: FDA-Public Use
  Company Number: PHHY2018US060826

PATIENT
  Age: 70 Year
  Sex: Female
  Weight: 49.44 kg

DRUGS (1)
  1. GILENYA [Suspect]
     Active Substance: FINGOLIMOD HYDROCHLORIDE
     Indication: PRODUCT USED FOR UNKNOWN INDICATION
     Dosage: UNK
     Route: 048
     Dates: start: 20130423, end: 20170418

REACTIONS (1)
  - Invasive breast carcinoma [Unknown]

NARRATIVE: CASE EVENT DATE: 20180328
